FAERS Safety Report 25272369 (Version 2)
Quarter: 2025Q2

REPORT INFORMATION
  Report Type: Spontaneous
  Country: US (occurrence: US)
  Receive Date: 20250506
  Receipt Date: 20250513
  Transmission Date: 20250717
  Serious: No
  Sender: PADAGIS
  Company Number: US-PADAGIS-2025PAD00513

PATIENT

DRUGS (4)
  1. TROSPIUM CHLORIDE [Suspect]
     Active Substance: TROSPIUM CHLORIDE
     Indication: Enuresis
     Route: 065
  2. TROSPIUM CHLORIDE [Suspect]
     Active Substance: TROSPIUM CHLORIDE
     Route: 065
  3. TROSPIUM CHLORIDE [Suspect]
     Active Substance: TROSPIUM CHLORIDE
     Route: 065
  4. SERTRALINE [Concomitant]
     Active Substance: SERTRALINE HYDROCHLORIDE
     Indication: Product used for unknown indication
     Route: 065

REACTIONS (3)
  - Dry mouth [Unknown]
  - Fatigue [Unknown]
  - Drug ineffective [Unknown]
